FAERS Safety Report 4621682-5 (Version None)
Quarter: 2005Q1

REPORT INFORMATION
  Report Type: 
  Country: None (occurrence: None)
  Receive Date: 20050329
  Receipt Date: 20050318
  Transmission Date: 20050727
  Serious: Yes (Congenital Anomaly, Other)
  Sender: FDA-Public Use
  Company Number: PHRM2005FR01096

PATIENT
  Age: 1 Day
  Sex: Male

DRUGS (4)
  1. ZOLOFT [Suspect]
     Route: 064
  2. TRANXENE [Suspect]
     Route: 064
  3. INSULIN [Concomitant]
     Route: 064
  4. LEPONEX [Suspect]
     Route: 064

REACTIONS (13)
  - CONGENITAL HAND MALFORMATION [None]
  - CONGENITAL PYELOCALIECTASIS [None]
  - CRYPTORCHISM [None]
  - DEVELOPMENTAL COORDINATION DISORDER [None]
  - DRUG EXPOSURE DURING PREGNANCY [None]
  - DRUG WITHDRAWAL SYNDROME NEONATAL [None]
  - HIGH ARCHED PALATE [None]
  - HYPOTONIA NEONATAL [None]
  - NEONATAL DISORDER [None]
  - NEONATAL TACHYPNOEA [None]
  - TALIPES [None]
  - TORTICOLLIS [None]
  - TREMOR NEONATAL [None]
